FAERS Safety Report 6891504 (Version 4)
Quarter: 2013Q2

REPORT INFORMATION
  Report Type: Spontaneous
  Country: GB (occurrence: GB)
  Receive Date: 20090126
  Receipt Date: 20130624
  Transmission Date: 20140414
  Serious: Yes (Life-Threatening)
  Sender: FDA-Public Use
  Company Number: GB-PFIZER INC-2009157011

PATIENT
  Age: 79 Year
  Sex: Female

DRUGS (9)
  1. AMLODIPINE BESILATE [Suspect]
     Dosage: 5 MG, DAILY
     Route: 048
  2. ATORVASTATIN CALCIUM [Suspect]
     Dosage: 10 MG, UNK
     Route: 048
  3. ZOTON [Suspect]
     Dosage: 30 MG, DAILY
     Route: 048
  4. TEMAZEPAM [Suspect]
     Dosage: 20 MG, UNK
     Route: 048
  5. ACETYLSALICYLIC ACID [Suspect]
     Dosage: 75 MG, UNK
     Route: 048
  6. RANITIDINE [Suspect]
     Dosage: 300 MG, UNK
     Route: 048
  7. SERETIDE [Suspect]
     Indication: ASTHMA
     Dosage: 4 DF (INHALED)
     Route: 055
  8. VALSARTAN [Suspect]
     Dosage: 80 MG, UNK
     Route: 048
  9. VENTOLIN [Suspect]
     Indication: ASTHMA
     Dosage: 800 UG, INHALED
     Route: 055

REACTIONS (2)
  - Asthma [Unknown]
  - Lower respiratory tract infection [Unknown]
